FAERS Safety Report 18170788 (Version 3)
Quarter: 2020Q3

REPORT INFORMATION
  Report Type: Report from Study
  Country: US (occurrence: US)
  Receive Date: 20200819
  Receipt Date: 20200921
  Transmission Date: 20201103
  Serious: Yes (Hospitalization)
  Sender: FDA-Public Use
  Company Number: US-PFIZER INC-2020310699

PATIENT
  Age: 4 Year
  Sex: Male
  Weight: 15.6 kg

DRUGS (5)
  1. CRIZOTINIB [Suspect]
     Active Substance: CRIZOTINIB
     Indication: NEUROBLASTOMA
     Dosage: 145 MG GIVEN BY NG?TUBE 2 TIMES DAILY
     Route: 048
     Dates: start: 20200724, end: 20200729
  2. CISPLATIN. [Suspect]
     Active Substance: CISPLATIN
     Indication: NEUROBLASTOMA
     Dosage: 40.8 MG DILUTED IN 300 ML SODIUM CHLORIDE 0.9% ADMINISTERED AT 77.5ML/HR IV Q 24HRS
     Route: 042
     Dates: start: 20200724, end: 20200727
  3. ETOPOSIDE. [Suspect]
     Active Substance: ETOPOSIDE
     Indication: NEUROBLASTOMA
     Dosage: 136 MG DILUTED IN 340 ML SODIUM CHLORIDE 0.9% ADMINISTERED AT 170ML/HR IV Q24HRS
     Route: 042
     Dates: start: 20200724, end: 20200727
  4. NGT [Concomitant]
     Dosage: UNK
     Dates: start: 20200730
  5. CRIZOTINIB [Suspect]
     Active Substance: CRIZOTINIB
     Dosage: UNK
     Dates: start: 20200801

REACTIONS (6)
  - Hypotension [Recovered/Resolved]
  - Blood urea increased [Recovered/Resolved]
  - Hyponatraemia [Recovered/Resolved]
  - Hypochloraemia [Recovered/Resolved]
  - Dehydration [Recovered/Resolved]
  - Hypokalaemia [Recovered/Resolved]

NARRATIVE: CASE EVENT DATE: 20200731
